FAERS Safety Report 4809425-3 (Version None)
Quarter: 2005Q4

REPORT INFORMATION
  Report Type: 
  Country: None (occurrence: None)
  Receive Date: 20051021
  Receipt Date: 20051010
  Transmission Date: 20060501
  Serious: Yes (Hospitalization, Other)
  Sender: FDA-Public Use
  Company Number: 2005125522

PATIENT
  Age: 62 Year
  Sex: Male
  Weight: 68.0396 kg

DRUGS (6)
  1. LIPITOR [Suspect]
     Indication: BLOOD CHOLESTEROL INCREASED
     Dosage: 40 MG (40 MG, 1 IN 1 D), ORAL
     Route: 048
     Dates: start: 19980101, end: 20050920
  2. ARGININE (ARGININE) [Suspect]
     Indication: BLOOD CHOLESTEROL
     Dosage: (500 MG)
     Dates: start: 20050101, end: 20050920
  3. CITRULLINE (CITRULLINE) [Suspect]
     Indication: BLOOD CHOLESTEROL
     Dosage: (600 MG)
     Dates: start: 20050101, end: 20050920
  4. ALPHA LIPOIC ACID (THIOCTIC ACID) [Suspect]
     Indication: BLOOD CHOLESTEROL
     Dosage: (30 MG)
     Dates: start: 20050101, end: 20050920
  5. FISH OIL (FISH OIL) [Suspect]
     Indication: BLOOD CHOLESTEROL
     Dates: start: 20050101, end: 20050920
  6. ACETYLSALICYLIC ACID SRT [Suspect]
     Indication: BLOOD CHOLESTEROL
     Dates: start: 20050101, end: 20050920

REACTIONS (15)
  - ANOREXIA [None]
  - CHILLS [None]
  - CONTUSION [None]
  - DIARRHOEA [None]
  - FLUID RETENTION [None]
  - HEPATIC MASS [None]
  - HEPATIC PAIN [None]
  - LIVER ABSCESS [None]
  - LIVER DISORDER [None]
  - PAIN [None]
  - SLUGGISHNESS [None]
  - STOMACH DISCOMFORT [None]
  - TREMOR [None]
  - WEIGHT DECREASED [None]
  - WEIGHT INCREASED [None]
